FAERS Safety Report 6395029-0 (Version None)
Quarter: 2009Q4

REPORT INFORMATION
  Report Type: 
  Country: None (occurrence: None)
  Receive Date: 20091009
  Receipt Date: 20091005
  Transmission Date: 20100525
  Serious: Yes (Other)
  Sender: FDA-Public Use
  Company Number: BE-BAYER-200933724GPV

PATIENT
  Age: 53 Year
  Sex: Female

DRUGS (6)
  1. AVELOX [Suspect]
     Indication: LUNG INFECTION
     Route: 042
     Dates: start: 20090912, end: 20090922
  2. DEPAKENE [Concomitant]
     Indication: BIPOLAR DISORDER
     Route: 065
     Dates: end: 20090917
  3. SULPIRIDE [Concomitant]
     Indication: BIPOLAR DISORDER
     Dosage: UNIT DOSE: 100 MG
     Route: 065
     Dates: end: 20090917
  4. MANIPREX [Concomitant]
     Indication: BIPOLAR DISORDER
     Route: 065
     Dates: end: 20090921
  5. WELLBUTRIN [Concomitant]
     Indication: BIPOLAR DISORDER
     Dosage: UNIT DOSE: 300 MG
     Route: 065
     Dates: end: 20090917
  6. SEROQUEL [Concomitant]
     Indication: BIPOLAR DISORDER
     Route: 065
     Dates: end: 20090917

REACTIONS (3)
  - HYPERNATRAEMIA [None]
  - NEPHROGENIC DIABETES INSIPIDUS [None]
  - POLYURIA [None]
